FAERS Safety Report 4276995-6 (Version None)
Quarter: 2004Q1

REPORT INFORMATION
  Report Type: 
  Country: None (occurrence: None)
  Receive Date: 20040120
  Receipt Date: 20040106
  Transmission Date: 20041129
  Serious: Yes (Death, Hospitalization)
  Sender: FDA-Public Use
  Company Number: 03P-167-0246073-00

PATIENT
  Age: 75 Year
  Sex: Female

DRUGS (3)
  1. HUMIRA [Suspect]
     Indication: RHEUMATOID ARTHRITIS
     Dosage: 40 MG, 1 IN 2 WK, SUBCUTANEOUS
     Route: 058
     Dates: start: 20031001, end: 20031229
  2. ASPIRIN [Concomitant]
  3. SULFASALAZINE [Concomitant]

REACTIONS (4)
  - ARTHRITIS INFECTIVE [None]
  - BLOOD BLISTER [None]
  - PNEUMONIA [None]
  - PYREXIA [None]
